FAERS Safety Report 13013016 (Version 1)
Quarter: 2016Q4

REPORT INFORMATION
  Report Type: Spontaneous
  Country: US (occurrence: US)
  Receive Date: 20161208
  Receipt Date: 20161208
  Transmission Date: 20170207
  Serious: Yes (Hospitalization, Disabling, Other)
  Sender: FDA-Public Use
  Company Number: None

PATIENT
  Sex: Female
  Weight: 51.75 kg

DRUGS (7)
  1. THYROID [Concomitant]
     Active Substance: LEVOTHYROXINE\LIOTHYRONINE
  2. NALTREXONE [Concomitant]
     Active Substance: NALTREXONE
  3. DIPROVAROLEX [Concomitant]
  4. BELVIQ [Suspect]
     Active Substance: LORCASERIN HYDROCHLORIDE
     Indication: OBESITY
     Dosage: ?          QUANTITY:2 TABLET(S);?
     Route: 048
     Dates: start: 20150501, end: 20160701
  5. RITALIN [Concomitant]
     Active Substance: METHYLPHENIDATE HYDROCHLORIDE
  6. MELATONA [Concomitant]
  7. TRAZONE [Concomitant]

REACTIONS (5)
  - Legal problem [None]
  - Hallucination [None]
  - Economic problem [None]
  - Mental disorder [None]
  - Loss of employment [None]

NARRATIVE: CASE EVENT DATE: 20160906
